FAERS Safety Report 6785644-4 (Version None)
Quarter: 2010Q2

REPORT INFORMATION
  Report Type: 
  Country: None (occurrence: None)
  Receive Date: 20100623
  Receipt Date: 20100615
  Transmission Date: 20101027
  Serious: Yes (Other)
  Sender: FDA-Public Use
  Company Number: JP-JNJFOC-20100606040

PATIENT
  Age: 62 Year
  Sex: Male

DRUGS (2)
  1. CRAVIT [Suspect]
     Indication: DIVERTICULITIS
     Route: 048
  2. BIOFERMIN R [Concomitant]
     Indication: DIVERTICULITIS
     Route: 065

REACTIONS (6)
  - ANAPHYLACTOID REACTION [None]
  - BLOOD PRESSURE INCREASED [None]
  - FLUSHING [None]
  - HEART RATE INCREASED [None]
  - NAUSEA [None]
  - PALPITATIONS [None]
